FAERS Safety Report 7026986-7 (Version None)
Quarter: 2010Q3

REPORT INFORMATION
  Report Type: 
  Country: None (occurrence: None)
  Receive Date: 20100929
  Receipt Date: 20100916
  Transmission Date: 20110219
  Serious: Yes (Life-Threatening)
  Sender: FDA-Public Use
  Company Number: MC201000262

PATIENT
  Age: 47 Year
  Sex: Male

DRUGS (8)
  1. ANGIOMAX [Suspect]
     Dosage: 10 ML, BOLUS, INTRAVENOUS
     Route: 040
     Dates: start: 20100617, end: 20100617
  2. ANGIOMAX [Suspect]
     Dosage: 23 ML, HR, INTRAVENOUS
     Route: 042
     Dates: start: 20100617
  3. VISIPAQUE [Suspect]
     Dosage: 60 ML
  4. MIDAZOLAM HCL [Suspect]
     Dosage: 2 MG, QD, INTRAVENOUS
     Route: 042
     Dates: start: 20100617, end: 20100617
  5. PLAVIX (CLOPIDODGREL SULFATE) [Concomitant]
  6. ISOPTIN [Concomitant]
  7. ISOSORBIDE DINITRATE [Concomitant]
  8. HEPARIN [Concomitant]

REACTIONS (5)
  - ANAPHYLACTOID REACTION [None]
  - BRADYCARDIA [None]
  - BRONCHOSPASM [None]
  - SHOCK [None]
  - URTICARIA [None]
